FAERS Safety Report 19891455 (Version 1)
Quarter: 2021Q3

REPORT INFORMATION
  Report Type: Spontaneous
  Country: GB (occurrence: GB)
  Receive Date: 20210928
  Receipt Date: 20210928
  Transmission Date: 20211014
  Serious: Yes (Other)
  Sender: FDA-Public Use
  Company Number: GB-BAYER-2021-213571

PATIENT
  Age: 14 Year
  Sex: Male

DRUGS (1)
  1. NEXAVAR [Suspect]
     Active Substance: SORAFENIB
     Indication: DESMOID TUMOUR
     Dosage: DAILY DOSE 400 MG
     Route: 048
     Dates: start: 202009

REACTIONS (2)
  - Iridocyclitis [Recovered/Resolved]
  - Tuberculosis [Recovered/Resolved]

NARRATIVE: CASE EVENT DATE: 202011
